FAERS Safety Report 13635726 (Version 1)
Quarter: 2017Q2

REPORT INFORMATION
  Report Type: Spontaneous
  Country: US (occurrence: US)
  Receive Date: 20170531
  Receipt Date: 20170531
  Transmission Date: 20170830
  Serious: No
  Sender: FDA-Public Use
  Company Number: US-ASTELLAS-1742107

PATIENT
  Age: 68 Year
  Sex: Female

DRUGS (60)
  1. CIPRODEX (UNITED STATES) [Concomitant]
  2. FUROSEMIDE. [Concomitant]
     Active Substance: FUROSEMIDE
  3. GLIMEPIRIDE. [Concomitant]
     Active Substance: GLIMEPIRIDE
  4. HYDROCODONE BITARTRATE AND ACETAMINOPHEN [Concomitant]
     Active Substance: ACETAMINOPHEN\HYDROCODONE BITARTRATE
  5. JANUVIA [Concomitant]
     Active Substance: SITAGLIPTIN PHOSPHATE
  6. LEVOFLOXACIN. [Concomitant]
     Active Substance: LEVOFLOXACIN
  7. MECLIZINE [Concomitant]
     Active Substance: MECLIZINE HYDROCHLORIDE
  8. TRIAZOLAM. [Concomitant]
     Active Substance: TRIAZOLAM
  9. TARCEVA [Suspect]
     Active Substance: ERLOTINIB HYDROCHLORIDE
     Indication: LUNG NEOPLASM MALIGNANT
     Route: 048
     Dates: start: 20131013, end: 201604
  10. AMOXILLIN [Concomitant]
     Active Substance: AMOXICILLIN
  11. CEPHALEXIN. [Concomitant]
     Active Substance: CEPHALEXIN
  12. DUREZOL [Concomitant]
     Active Substance: DIFLUPREDNATE
  13. FLUTICASONE. [Concomitant]
     Active Substance: FLUTICASONE
  14. ILEVRO [Concomitant]
     Active Substance: NEPAFENAC
  15. NOVOLOG [Concomitant]
     Active Substance: INSULIN ASPART
  16. ALENDRONATE [Concomitant]
     Active Substance: ALENDRONATE SODIUM
  17. BESIVANCE [Concomitant]
     Active Substance: BESIFLOXACIN
  18. CIPROFLOXACIN. [Concomitant]
     Active Substance: CIPROFLOXACIN
  19. CREON [Concomitant]
     Active Substance: PANCRELIPASE AMYLASE\PANCRELIPASE LIPASE\PANCRELIPASE PROTEASE
  20. DIPHENATROP [Concomitant]
  21. ESZOPICLONE. [Concomitant]
     Active Substance: ESZOPICLONE
  22. LORATADINE. [Concomitant]
     Active Substance: LORATADINE
  23. LYRICA [Concomitant]
     Active Substance: PREGABALIN
  24. METOPROLOL. [Concomitant]
     Active Substance: METOPROLOL
  25. NEXIUM [Concomitant]
     Active Substance: ESOMEPRAZOLE MAGNESIUM
  26. OMEPRAZOLE. [Concomitant]
     Active Substance: OMEPRAZOLE
  27. CYCLOBENZAPRINE. [Concomitant]
     Active Substance: CYCLOBENZAPRINE
  28. MINTOX [Concomitant]
     Active Substance: ALUMINUM HYDROXIDE\DIMETHICONE\MAGNESIUM HYDROXIDE
  29. PREMARIN [Concomitant]
     Active Substance: ESTROGENS, CONJUGATED
  30. MEGESTROL [Concomitant]
     Active Substance: MEGESTROL
  31. PIOGLITAZONE. [Concomitant]
     Active Substance: PIOGLITAZONE
  32. CRESTOR [Concomitant]
     Active Substance: ROSUVASTATIN CALCIUM
  33. GLIPIZIDE. [Concomitant]
     Active Substance: GLIPIZIDE
  34. INSULIN [Concomitant]
     Active Substance: INSULIN NOS
  35. NITROFURAL [Concomitant]
  36. ROPINIROLE. [Concomitant]
     Active Substance: ROPINIROLE
  37. TOBRAMYCIN + DEXAMETHASONE EYE DROPS [Concomitant]
  38. DEXAMETHASON [Concomitant]
     Active Substance: DEXAMETHASONE
  39. GILOTRIF [Concomitant]
     Active Substance: AFATINIB
  40. PHENAZOPYRIDINE. [Concomitant]
     Active Substance: PHENAZOPYRIDINE
  41. CELECOXIB. [Concomitant]
     Active Substance: CELECOXIB
  42. AMLODIPINE [Concomitant]
     Active Substance: AMLODIPINE BESYLATE
  43. BACLOFEN. [Concomitant]
     Active Substance: BACLOFEN
  44. ESTRACE [Concomitant]
     Active Substance: ESTRADIOL
  45. FENOFIBRIC ACID. [Concomitant]
     Active Substance: FENOFIBRIC ACID
  46. LOTEMAX [Concomitant]
     Active Substance: LOTEPREDNOL ETABONATE
  47. MICROLET ENEMA [Concomitant]
  48. PROLENSA [Concomitant]
     Active Substance: BROMFENAC SODIUM
  49. SUCRALFATE. [Concomitant]
     Active Substance: SUCRALFATE
  50. TEMAZEPAM. [Concomitant]
     Active Substance: TEMAZEPAM
  51. SMZ TMP DS [Concomitant]
  52. AMOX TR-K (UNK INGREDIENTS) [Concomitant]
  53. DIAZEPAM. [Concomitant]
     Active Substance: DIAZEPAM
     Route: 065
  54. GABAPENTIN. [Concomitant]
     Active Substance: GABAPENTIN
  55. HYDROCHLOROTHIAZID [Concomitant]
     Active Substance: HYDROCHLOROTHIAZIDE
  56. LOSARTAN. [Concomitant]
     Active Substance: LOSARTAN
  57. NAMENDA [Concomitant]
     Active Substance: MEMANTINE HYDROCHLORIDE
  58. TRIAMCINOLON [Concomitant]
  59. ZENPEP [Concomitant]
     Active Substance: PANCRELIPASE AMYLASE\PANCRELIPASE LIPASE\PANCRELIPASE PROTEASE
  60. ZOLPIDEM [Concomitant]
     Active Substance: ZOLPIDEM\ZOLPIDEM TARTRATE

REACTIONS (2)
  - Drug ineffective [Unknown]
  - No adverse event [Unknown]

NARRATIVE: CASE EVENT DATE: 201604
